FAERS Safety Report 4383365-9 (Version None)
Quarter: 2004Q2

REPORT INFORMATION
  Report Type: 
  Country: None (occurrence: None)
  Receive Date: 20040618
  Receipt Date: 20040611
  Transmission Date: 20050107
  Serious: Yes (Death)
  Sender: FDA-Public Use
  Company Number: HQWYE450715JUN04

PATIENT
  Age: 56 Year
  Sex: Female

DRUGS (4)
  1. PREMPRO [Suspect]
  2. MEDROXYPROGESTERONE [Suspect]
  3. PREMARIN [Suspect]
  4. PROVERA [Suspect]

REACTIONS (4)
  - BREAST CANCER STAGE IV [None]
  - METASTASES TO LIVER [None]
  - METASTASES TO LYMPH NODES [None]
  - METASTASES TO PLEURA [None]
